FAERS Safety Report 22308802 (Version 1)
Quarter: 2023Q2

REPORT INFORMATION
  Report Type: Spontaneous
  Country: US (occurrence: None)
  Receive Date: 20230511
  Receipt Date: 20230511
  Transmission Date: 20230721
  Serious: No
  Sender: FDA-Public Use
  Company Number: US-ROCHE-3277312

PATIENT
  Sex: Female

DRUGS (1)
  1. OCREVUS [Suspect]
     Active Substance: OCRELIZUMAB
     Indication: Primary progressive multiple sclerosis
     Dosage: LAST INFUSION OF OCREVUS WAS 06-SEP-2022
     Route: 065
     Dates: start: 202003, end: 20220906

REACTIONS (1)
  - Body temperature increased [Recovered/Resolved]
